FAERS Safety Report 5779261-2 (Version None)
Quarter: 2008Q2

REPORT INFORMATION
  Report Type: 
  Country: None (occurrence: None)
  Receive Date: 20080619
  Receipt Date: 20080616
  Transmission Date: 20081010
  Serious: Yes (Other)
  Sender: FDA-Public Use
  Company Number: DE-JNJFOC-20070803328

PATIENT
  Age: 24 Year
  Sex: Female
  Weight: 78.5 kg

DRUGS (5)
  1. INVEGA [Suspect]
     Indication: PSYCHOTIC DISORDER
     Route: 048
  2. ZYPREXA [Suspect]
     Indication: PSYCHOTIC DISORDER
     Dosage: 5-10 MG  A DAY
     Route: 065
     Dates: end: 20070807
  3. L-THYROX [Suspect]
     Indication: HYPOTHYROIDISM
     Route: 065
  4. COTRIM [Suspect]
     Indication: URINARY TRACT INFECTION
     Route: 048
     Dates: start: 20070727, end: 20070727
  5. FOLIC ACID [Suspect]
     Indication: PREGNANCY
     Route: 065

REACTIONS (2)
  - CAESAREAN SECTION [None]
  - DRUG EXPOSURE DURING PREGNANCY [None]
